FAERS Safety Report 21040191 (Version 5)
Quarter: 2024Q4

REPORT INFORMATION
  Report Type: Spontaneous
  Country: US (occurrence: US)
  Receive Date: 20220704
  Receipt Date: 20241206
  Transmission Date: 20250114
  Serious: Yes (Other)
  Sender: NOVARTIS
  Company Number: US-002147023-NVSC2022US151840

PATIENT
  Age: 81 Year
  Sex: Male

DRUGS (1)
  1. COSENTYX [Suspect]
     Active Substance: SECUKINUMAB
     Indication: Ankylosing spondylitis
     Dosage: 150 MG, QW
     Route: 058
     Dates: start: 20220621

REACTIONS (3)
  - Skin cancer [Unknown]
  - COVID-19 [Recovering/Resolving]
  - Influenza like illness [Unknown]

NARRATIVE: CASE EVENT DATE: 20220625
